FAERS Safety Report 11778898 (Version 4)
Quarter: 2015Q4

REPORT INFORMATION
  Report Type: Spontaneous
  Country: US (occurrence: US)
  Receive Date: 20151125
  Receipt Date: 20151205
  Transmission Date: 20160304
  Serious: Yes (Other)
  Sender: FDA-Public Use
  Company Number: US-TEVA-612539ACC

PATIENT
  Age: 67 Year
  Sex: Male

DRUGS (8)
  1. RITUXIMAB [Concomitant]
     Active Substance: RITUXIMAB
     Indication: CHRONIC LYMPHOCYTIC LEUKAEMIA
     Route: 065
  2. BENDAMUSTINE HYDROCHLORIDE [Suspect]
     Active Substance: BENDAMUSTINE HYDROCHLORIDE
     Indication: CHRONIC LYMPHOCYTIC LEUKAEMIA
     Dosage: COURSE OF ONLY ONE DAY OF BENDAMUSTINE INSTEAD OF TWO DAYS
     Route: 042
  3. FAMVIR [Concomitant]
     Active Substance: FAMCICLOVIR
     Indication: ANTIFUNGAL PROPHYLAXIS
     Route: 065
  4. DEXAMETHASONE. [Suspect]
     Active Substance: DEXAMETHASONE
     Indication: PARANEOPLASTIC PEMPHIGUS
     Dosage: 100 MILLIGRAM DAILY; ONCE DAY FOR TWO DAYS
     Route: 065
  5. DIFLUCAN [Concomitant]
     Active Substance: FLUCONAZOLE
     Indication: ANTIFUNGAL PROPHYLAXIS
     Route: 065
  6. DEXAMETHASONE. [Suspect]
     Active Substance: DEXAMETHASONE
     Dosage: 50 MILLIGRAM DAILY;
     Route: 065
  7. MYCOPHENOLATE MOFETIL. [Suspect]
     Active Substance: MYCOPHENOLATE MOFETIL
     Indication: PARANEOPLASTIC PEMPHIGUS
     Dosage: 2 GRAM DAILY; FOR 1 MONTH
     Route: 065
  8. ATOVAQUONE. [Concomitant]
     Active Substance: ATOVAQUONE
     Indication: ANTIFUNGAL PROPHYLAXIS
     Route: 065

REACTIONS (5)
  - Neutropenia [Recovering/Resolving]
  - Pyrexia [Unknown]
  - Weight increased [Unknown]
  - Febrile neutropenia [Unknown]
  - Paraneoplastic pemphigus [Recovering/Resolving]
